FAERS Safety Report 19255535 (Version 2)
Quarter: 2021Q3

REPORT INFORMATION
  Report Type: Report from Study
  Country: US (occurrence: US)
  Receive Date: 20210514
  Receipt Date: 20210913
  Transmission Date: 20211014
  Serious: Yes (Hospitalization, Other)
  Sender: FDA-Public Use
  Company Number: US-BIOGEN-2021BI01009804

PATIENT
  Sex: Female

DRUGS (2)
  1. VUMERITY [Suspect]
     Active Substance: DIROXIMEL FUMARATE
     Indication: MULTIPLE SCLEROSIS
     Route: 065
     Dates: start: 20210302
  2. VUMERITY [Suspect]
     Active Substance: DIROXIMEL FUMARATE
     Route: 048
     Dates: start: 20210303

REACTIONS (6)
  - Pneumonia bacterial [Recovered/Resolved]
  - Multiple sclerosis [Not Recovered/Not Resolved]
  - Renal procedural complication [Not Recovered/Not Resolved]
  - Hernia [Unknown]
  - Thrombosis [Not Recovered/Not Resolved]
  - Traumatic liver injury [Unknown]
